FAERS Safety Report 7307885-X (Version None)
Quarter: 2011Q1

REPORT INFORMATION
  Report Type: 
  Country: None (occurrence: None)
  Receive Date: 20110223
  Receipt Date: 20110211
  Transmission Date: 20110831
  Serious: Yes (Other)
  Sender: FDA-Public Use
  Company Number: US-ELI_LILLY_AND_COMPANY-US201102004009

PATIENT
  Sex: Female
  Weight: 73.923 kg

DRUGS (5)
  1. GLUCOPHAGE [Concomitant]
     Indication: METABOLIC SYNDROME
     Route: 048
  2. BYETTA [Suspect]
     Dosage: 5 UG, 2/D
     Dates: start: 20101101, end: 20101201
  3. BYETTA [Suspect]
     Dosage: 10 UG, 2/D
     Dates: start: 20101201
  4. BYETTA [Suspect]
     Indication: METABOLIC SYNDROME
     Dosage: 5 UG, 2/D
     Dates: start: 20080101
  5. BYETTA [Suspect]
     Dosage: 10 UG, 2/D
     Dates: end: 20100101

REACTIONS (2)
  - DRUG EXPOSURE DURING PREGNANCY [None]
  - ABORTION SPONTANEOUS [None]
